FAERS Safety Report 7549636-X (Version None)
Quarter: 2011Q2

REPORT INFORMATION
  Report Type: 
  Country: None (occurrence: None)
  Receive Date: 20110615
  Receipt Date: 20110531
  Transmission Date: 20111010
  Serious: Yes (Hospitalization)
  Sender: FDA-Public Use
  Company Number: US-JNJFOC-20110602091

PATIENT
  Sex: Male
  Weight: 42.6 kg

DRUGS (9)
  1. REMICADE [Suspect]
     Indication: COLITIS ULCERATIVE
     Route: 042
     Dates: start: 20100806
  2. NYSTATIN [Concomitant]
  3. ZOFRAN [Concomitant]
  4. OTHER THERAPEUTIC DRUGS [Concomitant]
  5. FLUCONAZOLE [Concomitant]
  6. MESALAMINE [Concomitant]
     Route: 054
  7. LOPERAMIDE [Concomitant]
  8. PRILOSEC [Concomitant]
  9. REMICADE [Suspect]
     Route: 042
     Dates: start: 20110502

REACTIONS (1)
  - COLITIS ULCERATIVE [None]
